FAERS Safety Report 9026015 (Version 1)
Quarter: 2012Q4

REPORT INFORMATION
  Report Type: Spontaneous
  Country: US (occurrence: None)
  Receive Date: 20121217
  Receipt Date: 20121217
  Transmission Date: 20130627
  Serious: Yes (Life-Threatening, Hospitalization, Disabling, Other)
  Sender: FDA-Public Use
  Company Number: None

PATIENT
  Age: 71 Year
  Sex: Male
  Weight: 74.39 kg

DRUGS (1)
  1. LEVAQUIN - 500MG - 7 TABS [Suspect]
     Indication: PNEUMONIA
     Dates: start: 20100830, end: 20100905

REACTIONS (12)
  - Adverse drug reaction [None]
  - Rash [None]
  - Dyspnoea [None]
  - Muscle disorder [None]
  - Oedema peripheral [None]
  - Oedema peripheral [None]
  - Heart rate increased [None]
  - Hallucination [None]
  - Weight decreased [None]
  - White blood cell count increased [None]
  - Pain in extremity [None]
  - Myocardial infarction [None]
